FAERS Safety Report 7070897-8 (Version None)
Quarter: 2010Q4

REPORT INFORMATION
  Report Type: 
  Country: None (occurrence: None)
  Receive Date: 20101029
  Receipt Date: 20101021
  Transmission Date: 20110411
  Serious: Yes (Death)
  Sender: FDA-Public Use
  Company Number: JP-PFIZER INC-2010133644

PATIENT
  Age: 74 Year
  Sex: Female

DRUGS (4)
  1. VFEND [Suspect]
     Indication: ASPERGILLOSIS
     Dosage: UNK
     Route: 042
  2. VFEND [Suspect]
     Dosage: UNK
     Route: 042
  3. AMPHOTERICINE B, LIPOSOME [Concomitant]
  4. MICAFUNGIN [Concomitant]

REACTIONS (1)
  - VENTRICULAR FIBRILLATION [None]
